FAERS Safety Report 5002166-1 (Version None)
Quarter: 2006Q2

REPORT INFORMATION
  Report Type: 
  Country: None (occurrence: None)
  Receive Date: 20060515
  Receipt Date: 20050811
  Transmission Date: 20061013
  Serious: Yes (Other)
  Sender: FDA-Public Use
  Company Number: 2005UW12026

PATIENT
  Age: 48 Year
  Sex: Female

DRUGS (5)
  1. QUETIAPINE [Suspect]
     Indication: BIPOLAR I DISORDER
     Dosage: 50 MG/DAY TITRATED UP TO 250 MG/DAY
     Route: 048
     Dates: start: 20050603, end: 20050617
  2. QUETIAPINE [Suspect]
     Dosage: 50 MG/DAY TITRATED UP TO 250 MG/DAY
     Route: 048
     Dates: end: 20050617
  3. CLONAZEPAM [Concomitant]
     Route: 048
     Dates: start: 20050602, end: 20050612
  4. ANTIBIOTICS [Concomitant]
  5. STIMULATOR FACTOR OF HUMAN GRANULOCYTES COLONIES [Concomitant]

REACTIONS (2)
  - BONE MARROW FAILURE [None]
  - LEUKOPENIA [None]
